FAERS Safety Report 18983729 (Version 3)
Quarter: 2021Q1

REPORT INFORMATION
  Report Type: Spontaneous
  Country: JP (occurrence: JP)
  Receive Date: 20210309
  Receipt Date: 20210329
  Transmission Date: 20210420
  Serious: Yes (Hospitalization, Other)
  Sender: FDA-Public Use
  Company Number: JP-TAKEDA-2021TJP007751

PATIENT
  Age: 70 Year
  Sex: Female

DRUGS (5)
  1. MAGMITT [Concomitant]
     Active Substance: MAGNESIUM OXIDE
     Indication: PRODUCT USED FOR UNKNOWN INDICATION
     Route: 065
  2. MIYA?BM [Concomitant]
     Active Substance: CLOSTRIDIUM BUTYRICUM SPORES STRAIN M-55
     Indication: PRODUCT USED FOR UNKNOWN INDICATION
     Route: 065
  3. DIMETICONE [Concomitant]
     Active Substance: DIMETHICONE
     Indication: PRODUCT USED FOR UNKNOWN INDICATION
     Route: 065
  4. AGRYLIN [Suspect]
     Active Substance: ANAGRELIDE HYDROCHLORIDE
     Indication: ESSENTIAL THROMBOCYTHAEMIA
     Dosage: 0.5 MILLIGRAM, TID
     Route: 048
     Dates: start: 201503, end: 20210222
  5. AGRYLIN [Suspect]
     Active Substance: ANAGRELIDE HYDROCHLORIDE
     Dosage: UNK
     Route: 048
     Dates: start: 20210305

REACTIONS (1)
  - Cerebral infarction [Recovered/Resolved]

NARRATIVE: CASE EVENT DATE: 202102
